FAERS Safety Report 12815861 (Version 1)
Quarter: 2016Q4

REPORT INFORMATION
  Report Type: Spontaneous
  Country: US (occurrence: US)
  Receive Date: 20161005
  Receipt Date: 20161005
  Transmission Date: 20170207
  Serious: Yes (Other)
  Sender: FDA-Public Use
  Company Number: None

PATIENT
  Age: 24 Year
  Sex: Male

DRUGS (1)
  1. AMPYRA [Suspect]
     Active Substance: DALFAMPRIDINE
     Indication: MULTIPLE SCLEROSIS
     Route: 048
     Dates: start: 201607

REACTIONS (4)
  - Genital rash [None]
  - Escherichia urinary tract infection [None]
  - Rash erythematous [None]
  - Urinary hesitation [None]

NARRATIVE: CASE EVENT DATE: 20160902
